FAERS Safety Report 5164902-3 (Version None)
Quarter: 2006Q4

REPORT INFORMATION
  Report Type: 
  Country: None (occurrence: None)
  Receive Date: 20061205
  Receipt Date: 20061122
  Transmission Date: 20070319
  Serious: Yes (Other)
  Sender: FDA-Public Use
  Company Number: GB-PURDUE-GBR_2006_0002628

PATIENT
  Age: 50 Year
  Sex: Male

DRUGS (4)
  1. MST CONTINUS TABLETS 30 MG [Suspect]
     Indication: PAIN
     Dosage: 30 MG, DAILY
     Route: 065
     Dates: start: 20061117
  2. CYMBALTA [Concomitant]
     Indication: DRUG USE FOR UNKNOWN INDICATION
     Dosage: 60 MG, UNK
     Route: 065
  3. ACETAMINOPHEN W/ CODEINE [Concomitant]
     Indication: DRUG USE FOR UNKNOWN INDICATION
     Dosage: UNK, PRN
     Route: 065
  4. MOVICOL [Concomitant]
     Indication: CONSTIPATION
     Dosage: UNK, UNK
     Route: 065

REACTIONS (3)
  - ANORGASMIA [None]
  - EJACULATION FAILURE [None]
  - FEELING ABNORMAL [None]
